FAERS Safety Report 8908694 (Version 1)
Quarter: 2012Q4

REPORT INFORMATION
  Report Type: 
  Country: US (occurrence: US)
  Receive Date: 20121114
  Receipt Date: 20121114
  Transmission Date: 20130627
  Serious: No
  Sender: FDA-Public Use
  Company Number: US-PFIZER INC-2012280297

PATIENT
  Age: 59 Year
  Sex: Female

DRUGS (3)
  1. SULFASALAZINE [Suspect]
     Dosage: Unk
  2. ENBREL [Suspect]
     Dosage: UNK
  3. ETODOLAC [Suspect]
     Dosage: Unk

REACTIONS (1)
  - Drug ineffective [Unknown]
